FAERS Safety Report 9317450 (Version 1)
Quarter: 2013Q2

REPORT INFORMATION
  Report Type: Spontaneous
  Country: None (occurrence: US)
  Receive Date: 20130530
  Receipt Date: 20130530
  Transmission Date: 20140414
  Serious: No
  Sender: FDA-Public Use
  Company Number: US-NOVEN-12US005183

PATIENT
  Sex: Male

DRUGS (2)
  1. DAYTRANA [Suspect]
     Indication: AUTISM
     Dosage: 15 MG, QD
     Route: 062
     Dates: start: 2010, end: 201205
  2. DAYTRANA [Suspect]
     Dosage: 10 MG, UNK

REACTIONS (5)
  - Disturbance in social behaviour [Not Recovered/Not Resolved]
  - Application site discomfort [Recovered/Resolved]
  - Off label use [Recovered/Resolved]
  - Drug administered at inappropriate site [Recovered/Resolved]
  - Incorrect drug administration duration [Recovered/Resolved]
